FAERS Safety Report 6108592-1 (Version None)
Quarter: 2009Q1

REPORT INFORMATION
  Report Type: 
  Country: None (occurrence: None)
  Receive Date: 20090305
  Receipt Date: 20090223
  Transmission Date: 20090719
  Serious: Yes (Hospitalization, Other)
  Sender: FDA-Public Use
  Company Number: 1000004938

PATIENT
  Age: 37 Year
  Sex: Male

DRUGS (4)
  1. CARBAMAZEPINE [Suspect]
     Dosage: 1000 MILLIGRAM (1000 MG)
  2. LITHIUM CARBONATE [Concomitant]
  3. CLONAZEPAM [Concomitant]
  4. OLANZAPINE [Concomitant]

REACTIONS (5)
  - ANISOCYTOSIS [None]
  - APLASIA PURE RED CELL [None]
  - ASTHENIA [None]
  - HYPOCHROMASIA [None]
  - ROULEAUX FORMATION [None]
